FAERS Safety Report 6660502-4 (Version None)
Quarter: 2010Q1

REPORT INFORMATION
  Report Type: 
  Country: None (occurrence: None)
  Receive Date: 20100331
  Receipt Date: 20100322
  Transmission Date: 20100710
  Serious: Yes (Hospitalization)
  Sender: FDA-Public Use
  Company Number: US-ALEXION-A200900995

PATIENT
  Sex: Female

DRUGS (8)
  1. SOLIRIS [Suspect]
     Indication: PAROXYSMAL NOCTURNAL HAEMOGLOBINURIA
     Dosage: 600 MG, QW
     Route: 042
     Dates: start: 20071026, end: 20071123
  2. SOLIRIS [Suspect]
     Dosage: 900 MG, Q2W
     Route: 042
     Dates: start: 20071207
  3. DECADRON [Concomitant]
     Dosage: 1 MG, 3 X WEEK
     Route: 048
  4. ATIVAN [Concomitant]
     Dosage: 1 MG, QD
     Route: 048
  5. FOLIC ACID [Concomitant]
     Dosage: 1 MG, QD
     Route: 048
  6. IBUPROFEN [Concomitant]
     Dosage: 600 MG, BID
     Route: 048
  7. DILAUDID [Concomitant]
     Dosage: 4 MG, TID
     Route: 048
  8. COMPAZINE [Concomitant]
     Dosage: 1 MG, PRN
     Route: 048

REACTIONS (4)
  - ARTHRALGIA [None]
  - ASTHENIA [None]
  - HAEMOLYSIS [None]
  - PAIN [None]
